FAERS Safety Report 12758269 (Version 1)
Quarter: 2016Q3

REPORT INFORMATION
  Report Type: Spontaneous
  Country: SE (occurrence: SE)
  Receive Date: 20160919
  Receipt Date: 20160919
  Transmission Date: 20161109
  Serious: Yes (Other)
  Sender: FDA-Public Use
  Company Number: SE-GLAXOSMITHKLINE-SE2016132904

PATIENT
  Age: 3 Year
  Sex: Male

DRUGS (1)
  1. FLUTIDE EVOHALER [Suspect]
     Active Substance: FLUTICASONE PROPIONATE
     Indication: ASTHMA
     Dosage: UNK, 2+2
     Route: 065

REACTIONS (3)
  - Sleep disorder [Recovered/Resolved]
  - Aggression [Recovered/Resolved]
  - Hyporesponsive to stimuli [Recovered/Resolved]
